FAERS Safety Report 26180896 (Version 1)
Quarter: 2025Q4

REPORT INFORMATION
  Report Type: Spontaneous
  Country: US (occurrence: US)
  Receive Date: 20251221
  Receipt Date: 20251221
  Transmission Date: 20260118
  Serious: No
  Sender: GILEAD
  Company Number: US-GILEAD-2025-0740932

PATIENT
  Age: 72 Year
  Sex: Female

DRUGS (2)
  1. LIVDELZI [Suspect]
     Active Substance: SELADELPAR LYSINE
     Indication: Primary biliary cholangitis
     Dosage: UNK
     Route: 065
     Dates: start: 202504
  2. ATORVASTATIN CALCIUM [Concomitant]
     Active Substance: ATORVASTATIN CALCIUM

REACTIONS (2)
  - Weight increased [Unknown]
  - Stress [Unknown]

NARRATIVE: CASE EVENT DATE: 20250801
